FAERS Safety Report 8961684 (Version 5)
Quarter: 2014Q2

REPORT INFORMATION
  Report Type: Spontaneous
  Country: DK (occurrence: JP)
  Receive Date: 20121213
  Receipt Date: 20140417
  Transmission Date: 20141212
  Serious: Yes (Hospitalization)
  Sender: FDA-Public Use
  Company Number: JP-FRI-1000040992

PATIENT
  Age: 41 Year
  Sex: Male
  Weight: 73 kg

DRUGS (13)
  1. LEXAPRO [Suspect]
     Indication: DEPRESSION
     Dosage: 10 MG
     Route: 048
     Dates: start: 20121116, end: 20121129
  2. LEXAPRO [Suspect]
     Dosage: 10 MG
     Route: 048
     Dates: start: 20121203, end: 20121203
  3. TAKEPRON [Suspect]
     Indication: ACUTE MYOCARDIAL INFARCTION
     Dosage: 15 MG
     Route: 048
     Dates: start: 20121130
  4. LAMICTAL [Concomitant]
     Indication: DEPRESSION
     Dosage: 100 MG
     Route: 048
     Dates: end: 20121129
  5. LANDSEN [Concomitant]
     Indication: DEPRESSION
     Dosage: 0.5 MG
     Route: 048
     Dates: end: 20121129
  6. RIVOTRIL [Concomitant]
     Indication: DEPRESSION
     Dosage: 0.5 MG
     Route: 048
     Dates: start: 20121203, end: 20121203
  7. PLAVIX [Concomitant]
     Indication: ACUTE MYOCARDIAL INFARCTION
     Dosage: 75 MG
     Route: 048
     Dates: start: 20121130
  8. BAYASPIRIN [Concomitant]
     Indication: ACUTE MYOCARDIAL INFARCTION
     Dosage: 100 MG
     Route: 048
     Dates: start: 20121130
  9. CRESTOR [Concomitant]
     Indication: ACUTE MYOCARDIAL INFARCTION
     Dosage: 2.5 MG
     Route: 048
     Dates: start: 20121130
  10. NICORANDIS [Concomitant]
     Indication: ACUTE MYOCARDIAL INFARCTION
     Dosage: 15 MG
     Route: 048
     Dates: start: 20121130
  11. MAGNESIUM OXIDE [Concomitant]
     Indication: ACUTE MYOCARDIAL INFARCTION
     Dosage: 1.5 G
     Route: 048
     Dates: start: 20121130
  12. SOLITA-T NO.1 [Concomitant]
     Indication: ACUTE MYOCARDIAL INFARCTION
     Dosage: 500 ML
     Route: 041
     Dates: start: 20121130
  13. HEPARIN SODIUM [Concomitant]
     Indication: ACUTE MYOCARDIAL INFARCTION
     Dosage: 12 KU
     Route: 041
     Dates: start: 20121130

REACTIONS (5)
  - Torsade de pointes [Recovering/Resolving]
  - Electrocardiogram QT prolonged [Unknown]
  - Ventricular fibrillation [Recovering/Resolving]
  - Drug interaction [Recovering/Resolving]
  - Listless [Recovering/Resolving]
